FAERS Safety Report 22028222 (Version 1)
Quarter: 2023Q1

REPORT INFORMATION
  Report Type: Spontaneous
  Country: US (occurrence: None)
  Receive Date: 20230223
  Receipt Date: 20230223
  Transmission Date: 20230418
  Serious: No
  Sender: FDA-Public Use
  Company Number: US-ROCHE-3142934

PATIENT
  Sex: Female
  Weight: 68.100 kg

DRUGS (6)
  1. NUTROPIN AQ [Suspect]
     Active Substance: SOMATROPIN
     Indication: Hypopituitarism
     Dosage: ONE TIME DAILY
     Route: 058
     Dates: start: 20170112
  2. BYDUREON [Concomitant]
     Active Substance: EXENATIDE
     Route: 058
     Dates: start: 20170103, end: 20171113
  3. LANTUS SOLOSTAR [Concomitant]
     Active Substance: INSULIN GLARGINE
     Route: 058
     Dates: start: 20170103, end: 20171113
  4. LIPITOR [Concomitant]
     Active Substance: ATORVASTATIN CALCIUM
     Route: 048
     Dates: start: 20170103
  5. METOCLOPRAMIDE [Concomitant]
     Active Substance: METOCLOPRAMIDE
     Route: 048
     Dates: start: 20170103
  6. TRULICITY [Concomitant]
     Active Substance: DULAGLUTIDE
     Route: 058
     Dates: start: 20200407, end: 20220323

REACTIONS (1)
  - Hypersensitivity [Recovering/Resolving]
